FAERS Safety Report 7794552-1 (Version None)
Quarter: 2011Q3

REPORT INFORMATION
  Report Type: 
  Country: None (occurrence: None)
  Receive Date: 20110930
  Receipt Date: 20110923
  Transmission Date: 20111222
  Serious: Yes (Other)
  Sender: FDA-Public Use
  Company Number: 2011SP044963

PATIENT
  Sex: Male

DRUGS (8)
  1. AMITRIPTYLINE HCL [Suspect]
     Indication: PRODUCT USED FOR UNKNOWN INDICATION
     Dosage: 20 MG;QD;PO
     Route: 048
  2. QUININE SULFATE [Concomitant]
  3. OMEPRAZOLE [Suspect]
     Indication: PRODUCT USED FOR UNKNOWN INDICATION
     Dosage: 20 MG;QD;PO
     Route: 048
  4. MIRTAZAPINE [Suspect]
     Indication: PRODUCT USED FOR UNKNOWN INDICATION
     Dosage: 15 MG;QD;PO
     Route: 048
  5. DOMPERIDONE [Concomitant]
  6. ONDANSETRON [Concomitant]
  7. ACETAMINOPHEN [Concomitant]
  8. PREDNISOLONE [Concomitant]

REACTIONS (2)
  - BLOOD SODIUM DECREASED [None]
  - URINE SODIUM DECREASED [None]
